FAERS Safety Report 5089856-X (Version None)
Quarter: 2006Q3

REPORT INFORMATION
  Report Type: 
  Country: None (occurrence: None)
  Receive Date: 20060727
  Receipt Date: 20060516
  Transmission Date: 20061208
  Serious: Yes (Other)
  Sender: FDA-Public Use
  Company Number: 2006065156

PATIENT
  Age: 69 Year
  Sex: Male
  Weight: 79.3795 kg

DRUGS (3)
  1. LYRICA [Suspect]
     Indication: NEUROPATHY
     Dosage: 300 MEQ (100 MG,3 IN 1 D), UKNOWN
     Route: 065
     Dates: start: 20060501
  2. AMBIEN [Suspect]
     Indication: SOMNOLENCE
     Dosage: UNKNOWN
     Route: 065
  3. ASACOL [Concomitant]

REACTIONS (3)
  - DRUG INEFFECTIVE [None]
  - INSOMNIA [None]
  - PERIPHERAL COLDNESS [None]
